FAERS Safety Report 10154692 (Version 1)
Quarter: 2014Q2

REPORT INFORMATION
  Report Type: Spontaneous
  Country: US (occurrence: None)
  Receive Date: 20140502
  Receipt Date: 20140502
  Transmission Date: 20141212
  Serious: Yes (Hospitalization)
  Sender: FDA-Public Use
  Company Number: UTC-047693

PATIENT
  Age: 62 Year
  Sex: Female
  Weight: 80.27 kg

DRUGS (4)
  1. TYVASO [Suspect]
     Indication: PULMONARY ARTERIAL HYPERTENSION
     Route: 055
     Dates: start: 20130628
  2. COUMADIN (WARFARIN SODIUM) (UNKNOWN) [Concomitant]
  3. LETAIRIS (AMBRISENTAN) (UNKNOWN) [Concomitant]
  4. VIAGRA (SILDENAFIL) (UNKNOWN) [Concomitant]

REACTIONS (2)
  - Pneumonia [None]
  - Respiratory syncytial virus infection [None]
